FAERS Safety Report 10935525 (Version 2)
Quarter: 2015Q1

REPORT INFORMATION
  Report Type: Spontaneous
  Country: US (occurrence: US)
  Receive Date: 20150320
  Receipt Date: 20150326
  Transmission Date: 20150721
  Serious: No
  Sender: FDA-Public Use
  Company Number: US-GLAXOSMITHKLINE-US2015GSK011753

PATIENT
  Age: 44 Year
  Sex: Male

DRUGS (1)
  1. VOTRIENT [Suspect]
     Active Substance: PAZOPANIB HYDROCHLORIDE
     Indication: RENAL CANCER
     Dosage: 800 MG, 1D
     Route: 048
     Dates: start: 20141013, end: 20150227

REACTIONS (3)
  - Blood test abnormal [Unknown]
  - Hair colour changes [Unknown]
  - Abdominal discomfort [Unknown]

NARRATIVE: CASE EVENT DATE: 20150227
